FAERS Safety Report 10906883 (Version 2)
Quarter: 2015Q2

REPORT INFORMATION
  Report Type: Report from Study
  Country: US (occurrence: None)
  Receive Date: 20150309
  Receipt Date: 20150422
  Transmission Date: 20150821
  Serious: Yes (Other)
  Sender: FDA-Public Use
  Company Number: 2767042

PATIENT
  Age: 66 Year
  Sex: Male
  Weight: 79 kg

DRUGS (10)
  1. RITUXAN [Suspect]
     Active Substance: RITUXIMAB
     Indication: DIFFUSE LARGE B-CELL LYMPHOMA
     Dosage: 375 MG/M2 MILLIGRAMS SQ. METER INTRAVENOUS (NOT OTHERWISE SPECIFIED)?
     Route: 042
     Dates: start: 20140620, end: 20140621
  2. CYTOXAN [Suspect]
     Active Substance: CYCLOPHOSPHAMIDE
     Indication: CHRONIC LYMPHOCYTIC LEUKAEMIA TRANSFORMATION
     Dosage: 750 MG/M2 MILLIGRAM/SQ. METER INTRAVENOUS (NOT OTHERWISE SPECIFIED)
     Route: 042
     Dates: start: 20140621, end: 20140621
  3. DOXORUBICIN [Suspect]
     Active Substance: DOXORUBICIN
     Indication: CHRONIC LYMPHOCYTIC LEUKAEMIA TRANSFORMATION
     Dosage: 50 MG/M2 MILLIGRAM/SQ. METER INTRAVENOUS (NOT OTHERWISE SPECIFIED)?
     Route: 042
     Dates: start: 20140621, end: 20140621
  4. PREDNISONE. [Suspect]
     Active Substance: PREDNISONE
     Indication: DIFFUSE LARGE B-CELL LYMPHOMA
     Route: 048
     Dates: start: 20140620, end: 20140625
  5. CYTOXAN [Suspect]
     Active Substance: CYCLOPHOSPHAMIDE
     Indication: DIFFUSE LARGE B-CELL LYMPHOMA
     Dosage: 750 MG/M2 MILLIGRAM/SQ. METER INTRAVENOUS (NOT OTHERWISE SPECIFIED)
     Route: 042
     Dates: start: 20140621, end: 20140621
  6. DOXORUBICIN [Suspect]
     Active Substance: DOXORUBICIN
     Indication: DIFFUSE LARGE B-CELL LYMPHOMA
     Dosage: 50 MG/M2 MILLIGRAM/SQ. METER INTRAVENOUS (NOT OTHERWISE SPECIFIED)?
     Route: 042
     Dates: start: 20140621, end: 20140621
  7. PREDNISONE. [Suspect]
     Active Substance: PREDNISONE
     Indication: CHRONIC LYMPHOCYTIC LEUKAEMIA TRANSFORMATION
     Route: 048
     Dates: start: 20140620, end: 20140625
  8. VINCRISTINE SULFATE INJECTION, USP, 1MG/ML (VINCRISTINE SULFATE) [Suspect]
     Active Substance: VINCRISTINE SULFATE
     Indication: CHRONIC LYMPHOCYTIC LEUKAEMIA TRANSFORMATION
     Dosage: 2 MG MILLIGRAM(S) (UNKNOWN), INTRAVENOUS (NOT OTHEWISE SPECIFIED)
     Route: 042
     Dates: start: 20140621, end: 20140621
  9. VINCRISTINE SULFATE INJECTION, USP, 1MG/ML (VINCRISTINE SULFATE) [Suspect]
     Active Substance: VINCRISTINE SULFATE
     Dosage: 2 MG MILLIGRAM(S) (UNKNOWN), INTRAVENOUS (NOT OTHEWISE SPECIFIED)
     Route: 042
     Dates: start: 20140621, end: 20140621
  10. RITUXAN [Suspect]
     Active Substance: RITUXIMAB
     Indication: CHRONIC LYMPHOCYTIC LEUKAEMIA TRANSFORMATION
     Dosage: 375 MG/M2 MILLIGRAMS SQ. METER INTRAVENOUS (NOT OTHERWISE SPECIFIED)?
     Route: 042
     Dates: start: 20140620, end: 20140621

REACTIONS (1)
  - Perirectal abscess [None]
